FAERS Safety Report 17427825 (Version 1)
Quarter: 2020Q1

REPORT INFORMATION
  Report Type: Spontaneous
  Country: GB (occurrence: GB)
  Receive Date: 20200217
  Receipt Date: 20200217
  Transmission Date: 20200409
  Serious: Yes (Death)
  Sender: FDA-Public Use
  Company Number: GB-MYLANLABS-2020M1018089

PATIENT
  Age: 48 Year
  Sex: Male

DRUGS (2)
  1. WARFARIN [Suspect]
     Active Substance: WARFARIN
     Indication: PRODUCT USED FOR UNKNOWN INDICATION
     Dosage: 500 MICROGRAM
     Route: 065
  2. LIOTHYRONINE [Concomitant]
     Active Substance: LIOTHYRONINE
     Dosage: EVERY DAY
     Route: 065
     Dates: start: 20180608

REACTIONS (1)
  - Death [Fatal]
